FAERS Safety Report 9257985 (Version 1)
Quarter: 2013Q1

REPORT INFORMATION
  Report Type: Spontaneous
  Country: US (occurrence: None)
  Receive Date: 20121212
  Receipt Date: 20121212
  Transmission Date: 20140127
  Serious: No
  Sender: FDA-Public Use
  Company Number: 1208USA007624

PATIENT
  Age: 48 Year
  Sex: Female

DRUGS (2)
  1. PEG-INTRON [Suspect]
     Indication: HEPATITIS C
     Dosage: UNK
     Dates: start: 20120621
  2. REBETOL [Suspect]
     Dosage: UNK
     Dates: start: 20120621

REACTIONS (3)
  - Weight decreased [None]
  - Decreased appetite [None]
  - Vomiting [None]
